FAERS Safety Report 9477430 (Version 2)
Quarter: 2016Q2

REPORT INFORMATION
  Report Type: Report from Study
  Country: US (occurrence: US)
  Receive Date: 20130826
  Receipt Date: 20160523
  Transmission Date: 20160815
  Serious: Yes (Hospitalization)
  Sender: FDA-Public Use
  Company Number: US-ROCHE-1262000

PATIENT
  Age: 47 Year
  Sex: Male
  Weight: 78.54 kg

DRUGS (19)
  1. PROGRAF [Concomitant]
     Active Substance: TACROLIMUS\TACROLIMUS ANHYDROUS
     Dosage: 1 TAB TWICE IN DAY.
     Route: 065
  2. PREDNISONE. [Concomitant]
     Active Substance: PREDNISONE
     Route: 065
  3. PROGRAF [Concomitant]
     Active Substance: TACROLIMUS\TACROLIMUS ANHYDROUS
     Dosage: 1 TAB BID
     Route: 065
  4. ALBUTEROL. [Concomitant]
     Active Substance: ALBUTEROL
     Dosage: REPORTED DRUG: ALBUTEROL HFA?2 PUFFS Q4-6 AS REQUIRED (CONCOMITANT MEDICATION AS OF 09A) , 1 VIAL EV
     Route: 065
  5. BABY ASPIRIN [Concomitant]
     Active Substance: ASPIRIN
     Dosage: 1 TABLET PO QAM
     Route: 048
  6. LABETALOL [Concomitant]
     Active Substance: LABETALOL\LABETALOL HYDROCHLORIDE
     Route: 065
  7. SINGULAIR [Concomitant]
     Active Substance: MONTELUKAST SODIUM
     Route: 048
  8. PREDNISONE. [Concomitant]
     Active Substance: PREDNISONE
     Dosage: 4 TAB EVERY DAY FOR 4 DAYS, 1 TAB A DAY FOR 3 DAYS.
     Route: 065
  9. CELLCEPT [Suspect]
     Active Substance: MYCOPHENOLATE MOFETIL\MYCOPHENOLATE MOFETIL HYDROCHLORIDE
     Indication: RENAL TRANSPLANT
     Dosage: SINCE SURGERY
     Route: 048
     Dates: start: 200605
  10. ADVAIR HFA [Concomitant]
     Active Substance: FLUTICASONE PROPIONATE\SALMETEROL XINAFOATE
     Dosage: 500/50?1 PUFF TWICE IN A DAY.
     Route: 065
     Dates: start: 20130809
  11. HUMALOG [Concomitant]
     Active Substance: INSULIN LISPRO
     Dosage: HUMALOG INSULIN PUMP
     Route: 065
  12. NASONEX [Concomitant]
     Active Substance: MOMETASONE FUROATE
     Dosage: 50 MCG/ACTUATION.?2 SPRAYS EACH NOSTRIL AT NIGHT
     Route: 065
  13. NORVASC [Concomitant]
     Active Substance: AMLODIPINE BESYLATE
     Dosage: 1 TAB EVERY AM
     Route: 048
  14. SIMVASTATIN. [Concomitant]
     Active Substance: SIMVASTATIN
     Dosage: 1 TAB QD
     Route: 065
  15. LABETALOL [Concomitant]
     Active Substance: LABETALOL\LABETALOL HYDROCHLORIDE
     Dosage: 1 TABLET TWICE A DAY (CONCOMITANT MEDICATION ON 09AUG2013)
     Route: 065
  16. CELEXA [Concomitant]
     Active Substance: CITALOPRAM HYDROBROMIDE
  17. XOLAIR [Suspect]
     Active Substance: OMALIZUMAB
     Indication: ASTHMA
     Route: 058
     Dates: start: 20130809
  18. XOLAIR [Suspect]
     Active Substance: OMALIZUMAB
     Route: 058
  19. BETALOL [Concomitant]

REACTIONS (13)
  - Chest discomfort [Recovering/Resolving]
  - Wheezing [Unknown]
  - Hyposmia [Unknown]
  - Nasal polyps [Unknown]
  - Breath sounds abnormal [Unknown]
  - Dyspnoea [Recovering/Resolving]
  - Obstructive airways disorder [Unknown]
  - Rhinitis allergic [Unknown]
  - Speech disorder [Recovering/Resolving]
  - Forced expiratory volume decreased [Unknown]
  - Nasal congestion [Unknown]
  - Upper-airway cough syndrome [Unknown]
  - Cough [Unknown]

NARRATIVE: CASE EVENT DATE: 20130805
